FAERS Safety Report 5753670 (Version 3)
Quarter: 2020Q3

REPORT INFORMATION
  Report Type: Report from Study
  Country: AR (occurrence: AR)
  Receive Date: 20050309
  Receipt Date: 20060403
  Transmission Date: 20201104
  Serious: Yes (Death, Life-Threatening)
  Sender: FDA-Public Use
  Company Number: AR-JNJFOC-20050203567

PATIENT
  Age: 77 Year
  Sex: Male

DRUGS (2)
  1. REOPRO [Suspect]
     Active Substance: ABCIXIMAB
     Route: 042
  2. REOPRO [Suspect]
     Active Substance: ABCIXIMAB
     Route: 042

REACTIONS (3)
  - Neurological symptom [Not Recovered/Not Resolved]
  - Haemorrhagic transformation stroke [Fatal]
  - Brain oedema [Not Recovered/Not Resolved]

NARRATIVE: CASE EVENT DATE: 20050211
